FAERS Safety Report 9466368 (Version 2)
Quarter: 2013Q3

REPORT INFORMATION
  Report Type: Spontaneous
  Country: BE (occurrence: BE)
  Receive Date: 20130820
  Receipt Date: 20130916
  Transmission Date: 20140515
  Serious: Yes (Hospitalization, Other)
  Sender: FDA-Public Use
  Company Number: BE-AMGEN-BELSP2013057523

PATIENT
  Age: 73 Year
  Sex: Male
  Weight: 69 kg

DRUGS (6)
  1. XGEVA [Suspect]
     Indication: BLADDER CANCER
     Dosage: UNK UNK, Q4WK
     Route: 058
     Dates: start: 201304, end: 201308
  2. TOTALIP [Concomitant]
     Indication: HYPERLIPIDAEMIA
     Dosage: 1 DF, QD
     Route: 048
  3. L-THYROXINE                        /00068001/ [Concomitant]
     Indication: HYPOTHYROIDISM
     Dosage: 1 DF, QD
     Route: 048
  4. CALCIUM WITH VITAMIN D3 [Concomitant]
     Indication: HYPOCALCAEMIA
     Dosage: 1 DF, QD
     Route: 048
  5. PANTOMED                           /01263204/ [Concomitant]
     Indication: ABDOMINAL DISCOMFORT
     Dosage: 1 DF, QD
     Route: 048
  6. CHEMOTHERAPEUTICS [Concomitant]

REACTIONS (2)
  - Hypocalcaemia [Recovered/Resolved]
  - Renal failure [Recovered/Resolved]
